FAERS Safety Report 8530754-4 (Version None)
Quarter: 2012Q3

REPORT INFORMATION
  Report Type: 
  Country: None (occurrence: None)
  Receive Date: 20120723
  Receipt Date: 20120717
  Transmission Date: 20120928
  Serious: Yes (Other)
  Sender: FDA-Public Use
  Company Number: PHHY2012MX062826

PATIENT
  Sex: Female

DRUGS (2)
  1. DIOVAN [Suspect]
     Indication: HYPERTENSION
     Dosage: 1 TABLET (80 MG) DAILY
     Dates: start: 20050701
  2. ASPIRIN [Concomitant]
     Indication: ISCHAEMIC HEART DISEASE PROPHYLAXIS
     Dosage: 80 MG, DAILY
     Dates: start: 20100101

REACTIONS (6)
  - CARDIAC DISORDER [None]
  - STOMATITIS [None]
  - ORAL INFECTION [None]
  - DENTAL CARIES [None]
  - CARDIOMYOPATHY [None]
  - TOOTHACHE [None]
